FAERS Safety Report 9257132 (Version 3)
Quarter: 2014Q1

REPORT INFORMATION
  Report Type: Spontaneous
  Country: US (occurrence: None)
  Receive Date: 20130424
  Receipt Date: 20140129
  Transmission Date: 20141002
  Serious: Yes (Hospitalization, Other)
  Sender: FDA-Public Use
  Company Number: JPI-P-031153

PATIENT
  Age: 87 Year
  Sex: Female

DRUGS (2)
  1. XYREM (500 MILLIGRAM/MILLILITERS, SOLUTION) (SODIUM OXYBATE) [Suspect]
     Indication: CATAPLEXY
     Dosage: 4.5GM (2.25GM, 2 IN 1 D) ORAL
     Route: 048
     Dates: start: 200307, end: 200402
  2. PROVIGIL (MODAFINIL) [Concomitant]

REACTIONS (10)
  - Spinal pain [None]
  - Fall [None]
  - Contusion [None]
  - Cataplexy [None]
  - Incontinence [None]
  - Arthritis [None]
  - Dysarthria [None]
  - Procedural pain [None]
  - Tongue disorder [None]
  - Surgery [None]
